FAERS Safety Report 17425263 (Version 1)
Quarter: 2020Q1

REPORT INFORMATION
  Report Type: Spontaneous
  Country: US (occurrence: US)
  Receive Date: 20200218
  Receipt Date: 20200218
  Transmission Date: 20200409
  Serious: Yes (Hospitalization, Other)
  Sender: FDA-Public Use
  Company Number: US-ABBVIE-20K-163-3273668-00

PATIENT
  Age: 68 Year
  Sex: Male
  Weight: 117.13 kg

DRUGS (2)
  1. HUMIRA [Suspect]
     Active Substance: ADALIMUMAB
     Indication: PSORIASIS
     Route: 058
     Dates: start: 2016, end: 201904
  2. HUMIRA [Suspect]
     Active Substance: ADALIMUMAB
     Route: 058
     Dates: start: 2020

REACTIONS (15)
  - Transient ischaemic attack [Recovered/Resolved with Sequelae]
  - Cerebral haemorrhage [Recovered/Resolved]
  - Gait disturbance [Recovering/Resolving]
  - Speech disorder [Recovering/Resolving]
  - Cerebral ischaemia [Not Recovered/Not Resolved]
  - Device issue [Unknown]
  - Intracranial pressure increased [Recovered/Resolved]
  - Hydrocephalus [Recovering/Resolving]
  - Fall [Recovering/Resolving]
  - Cerebellar atrophy [Not Recovered/Not Resolved]
  - Wrong technique in product usage process [Unknown]
  - Aphasia [Recovering/Resolving]
  - Psoriasis [Recovering/Resolving]
  - Balance disorder [Recovering/Resolving]
  - Dementia [Not Recovered/Not Resolved]

NARRATIVE: CASE EVENT DATE: 2018
